FAERS Safety Report 24710190 (Version 2)
Quarter: 2024Q4

REPORT INFORMATION
  Report Type: Spontaneous
  Country: GB (occurrence: GB)
  Receive Date: 20241209
  Receipt Date: 20241213
  Transmission Date: 20250115
  Serious: Yes (Other)
  Sender: ALEXION PHARMACEUTICALS
  Company Number: GB-AstraZeneca-CH-00760987A

PATIENT
  Age: 85 Year

DRUGS (4)
  1. TAGRISSO [Suspect]
     Active Substance: OSIMERTINIB
     Indication: Non-small cell lung cancer
     Dosage: UNK
  2. TAGRISSO [Suspect]
     Active Substance: OSIMERTINIB
     Dosage: UNK
     Route: 048
  3. TAGRISSO [Suspect]
     Active Substance: OSIMERTINIB
     Dosage: UNK
  4. TAGRISSO [Suspect]
     Active Substance: OSIMERTINIB
     Dosage: UNK
     Route: 048

REACTIONS (3)
  - Vascular dementia [Unknown]
  - Dry skin [Recovering/Resolving]
  - Diarrhoea [Unknown]
